FAERS Safety Report 4326588-7 (Version None)
Quarter: 2004Q1

REPORT INFORMATION
  Report Type: 
  Country: None (occurrence: None)
  Receive Date: 20040326
  Receipt Date: 20040326
  Transmission Date: 20041129
  Serious: Yes (Hospitalization, Disabling)
  Sender: FDA-Public Use
  Company Number: None

PATIENT
  Age: 55 Year
  Sex: Female
  Weight: 54.4316 kg

DRUGS (1)
  1. GEMCITABINE [Suspect]
     Indication: PANCREATIC CARCINOMA
     Dosage: 1,000 MG/M2 WEEKLY X 7 WEEKS
     Dates: end: 20040203

REACTIONS (7)
  - ARTERIAL INJURY [None]
  - ARTERIAL OCCLUSIVE DISEASE [None]
  - EXTREMITY NECROSIS [None]
  - PAIN [None]
  - RAYNAUD'S PHENOMENON [None]
  - SCLERODERMA [None]
  - VENOUS INJURY [None]
